FAERS Safety Report 25282998 (Version 1)
Quarter: 2025Q2

REPORT INFORMATION
  Report Type: Spontaneous
  Country: US (occurrence: None)
  Receive Date: 20250507
  Receipt Date: 20250507
  Transmission Date: 20250716
  Serious: Yes (Disabling)
  Sender: FDA-CTU
  Company Number: None

PATIENT
  Age: 25 Year
  Sex: Female
  Weight: 54 kg

DRUGS (1)
  1. DEPO-PROVERA [Suspect]
     Active Substance: MEDROXYPROGESTERONE ACETATE

REACTIONS (8)
  - Vitamin D deficiency [None]
  - Tendon rupture [None]
  - Stress fracture [None]
  - Extraskeletal ossification [None]
  - Physical disability [None]
  - Mobility decreased [None]
  - Loss of personal independence in daily activities [None]
  - Spinal disorder [None]

NARRATIVE: CASE EVENT DATE: 20101225
